FAERS Safety Report 6922343-X (Version None)
Quarter: 2010Q3

REPORT INFORMATION
  Report Type: 
  Country: None (occurrence: None)
  Receive Date: 20100813
  Receipt Date: 20100730
  Transmission Date: 20110219
  Serious: Yes (Disabling)
  Sender: FDA-Public Use
  Company Number: BR-BAYER-201015184LA

PATIENT
  Age: 45 Year
  Sex: Female

DRUGS (7)
  1. BETAFERON [Suspect]
     Indication: RELAPSING-REMITTING MULTIPLE SCLEROSIS
     Route: 058
  2. BETAFERON [Suspect]
     Route: 058
  3. BETAFERON [Suspect]
     Route: 058
     Dates: start: 20100514
  4. BETAFERON [Suspect]
     Dosage: DOSE TITRATION
     Route: 058
  5. LEXAPRO [Concomitant]
     Indication: ANTIDEPRESSANT THERAPY
     Dosage: HALF A DAY
     Route: 048
     Dates: start: 20100401
  6. NEOSALDINA [Concomitant]
     Indication: HEADACHE
     Route: 048
  7. ACETAMINOPHEN [Concomitant]
     Indication: CHILLS
     Route: 048
     Dates: start: 20100501

REACTIONS (11)
  - BALANCE DISORDER [None]
  - CHILLS [None]
  - FATIGUE [None]
  - GAIT DISTURBANCE [None]
  - HEADACHE [None]
  - INJECTION SITE DISCOLOURATION [None]
  - INJECTION SITE RASH [None]
  - MULTIPLE SCLEROSIS [None]
  - MUSCULAR WEAKNESS [None]
  - NAUSEA [None]
  - PAIN [None]
